FAERS Safety Report 4732870-1 (Version None)
Quarter: 2005Q3

REPORT INFORMATION
  Report Type: 
  Country: None (occurrence: None)
  Receive Date: 20050803
  Receipt Date: 20050414
  Transmission Date: 20060218
  Serious: No
  Sender: FDA-Public Use
  Company Number: US-GLAXOSMITHKLINE-A0554233A

PATIENT
  Age: 66 Year
  Sex: Female

DRUGS (2)
  1. AVANDAMET [Suspect]
     Dosage: 4 PER DAY
     Route: 048
  2. THYROID TAB [Concomitant]
     Route: 065

REACTIONS (1)
  - FATIGUE [None]
